FAERS Safety Report 5618320-1 (Version None)
Quarter: 2008Q1

REPORT INFORMATION
  Report Type: 
  Country: None (occurrence: None)
  Receive Date: 20080205
  Receipt Date: 20080205
  Transmission Date: 20080703
  Serious: Yes (Other)
  Sender: FDA-Public Use
  Company Number: None

PATIENT
  Sex: Female
  Weight: 71.6683 kg

DRUGS (1)
  1. PROAIR HFA [Suspect]
     Indication: ASTHMA
     Dosage: 2 ACTUATIONS AS NEEDED INHAL
     Route: 055
     Dates: start: 20080204, end: 20080204

REACTIONS (2)
  - PARAESTHESIA ORAL [None]
  - URTICARIA [None]
